FAERS Safety Report 10200970 (Version 4)
Quarter: 2014Q2

REPORT INFORMATION
  Report Type: Report from Study
  Country: AU (occurrence: AU)
  Receive Date: 20140528
  Receipt Date: 20140604
  Transmission Date: 20141212
  Serious: Yes (Hospitalization, Other)
  Sender: FDA-Public Use
  Company Number: PHHY2014AU056451

PATIENT
  Age: 62 Year
  Sex: Male

DRUGS (10)
  1. CLOZARIL [Suspect]
     Indication: SCHIZOPHRENIA
     Dosage: 400 MG,
     Dates: start: 20000905
  2. CLOZARIL [Suspect]
     Dosage: 400 MG, (350MG NOCTE AND 50 MG MORNING)
     Route: 048
  3. MIRTAZAPINE [Concomitant]
     Indication: DEPRESSION
     Dosage: 15 MG, NOCTE
  4. SIMVASTATIN [Concomitant]
     Indication: BLOOD CHOLESTEROL INCREASED
     Dosage: 40 MG, NOCTE
  5. ATENOLOL [Concomitant]
     Indication: HYPERTENSION
     Dosage: 25 MG, MANE
  6. ASPIRIN [Concomitant]
     Indication: CEREBROVASCULAR ACCIDENT PROPHYLAXIS
     Dosage: 100 MG, MANE
  7. SODIUM VALPROATE [Concomitant]
     Indication: AFFECTIVE DISORDER
     Dosage: 1 G, BID
  8. DOCUSATE W/SENNA [Concomitant]
     Indication: CONSTIPATION
     Dosage: 50/8 MG TAB BD
  9. RANITIDINE [Concomitant]
     Indication: GASTROOESOPHAGEAL REFLUX DISEASE
     Dosage: 150 MG, BID
  10. LACTULOSE [Concomitant]
     Indication: CONSTIPATION
     Dosage: 20 ML,

REACTIONS (10)
  - Faecaloma [Unknown]
  - Delirium [Recovering/Resolving]
  - Abnormal behaviour [Recovering/Resolving]
  - Agitation [Unknown]
  - Constipation [Recovering/Resolving]
  - Lower respiratory tract infection [Recovering/Resolving]
  - C-reactive protein increased [Unknown]
  - Vitamin D decreased [Unknown]
  - Ammonia increased [Unknown]
  - Antipsychotic drug level increased [Unknown]
